FAERS Safety Report 5006851-7 (Version None)
Quarter: 2006Q2

REPORT INFORMATION
  Report Type: 
  Country: None (occurrence: None)
  Receive Date: 20060516
  Receipt Date: 20060508
  Transmission Date: 20061013
  Serious: Yes (Other)
  Sender: FDA-Public Use
  Company Number: US200604000927

PATIENT
  Age: 65 Year
  Sex: Female

DRUGS (1)
  1. XIGRIS [Suspect]
     Indication: SEPSIS
     Dosage: INTRAVENOUS
     Route: 042
     Dates: start: 20060301, end: 20060301

REACTIONS (3)
  - ACCIDENTAL OVERDOSE [None]
  - INCORRECT DRUG ADMINISTRATION RATE [None]
  - MEDICATION ERROR [None]
